FAERS Safety Report 9659275 (Version 3)
Quarter: 2014Q1

REPORT INFORMATION
  Report Type: Spontaneous
  Country: US (occurrence: US)
  Receive Date: 20131031
  Receipt Date: 20140207
  Transmission Date: 20141002
  Serious: Yes (Other)
  Sender: FDA-Public Use
  Company Number: US-TEVA-440660USA

PATIENT
  Age: 37 Year
  Sex: Female
  Weight: 74.91 kg

DRUGS (2)
  1. PARAGARD 380A [Suspect]
     Indication: CONTRACEPTION
     Route: 015
     Dates: start: 20060523, end: 20131024
  2. SYNTHROID [Concomitant]
     Indication: HYPOTHYROIDISM

REACTIONS (2)
  - Smear cervix abnormal [Not Recovered/Not Resolved]
  - Precancerous cells present [Not Recovered/Not Resolved]
